FAERS Safety Report 6111538-3 (Version None)
Quarter: 2009Q1

REPORT INFORMATION
  Report Type: 
  Country: None (occurrence: None)
  Receive Date: 20090309
  Receipt Date: 20090226
  Transmission Date: 20090719
  Serious: Yes (Death, Hospitalization)
  Sender: FDA-Public Use
  Company Number: 2008-03760

PATIENT
  Age: 74 Year
  Sex: Female
  Weight: 83 kg

DRUGS (1)
  1. VELCADE [Suspect]
     Indication: MULTIPLE MYELOMA
     Dosage: 2.5 MG, INTRAVENOUS
     Route: 042
     Dates: start: 20080915, end: 20080925

REACTIONS (13)
  - CANDIDIASIS [None]
  - CHOLECYSTITIS ACUTE [None]
  - CHOLELITHIASIS [None]
  - DEHYDRATION [None]
  - FALL [None]
  - GASTROENTERITIS [None]
  - HAEMANGIOMA [None]
  - HEAD INJURY [None]
  - PANCREATITIS [None]
  - SPLEEN DISORDER [None]
  - SUDDEN DEATH [None]
  - SYNCOPE [None]
  - THROMBOCYTOPENIA [None]
